FAERS Safety Report 25931390 (Version 1)
Quarter: 2025Q4

REPORT INFORMATION
  Report Type: Report from Study
  Country: GB (occurrence: GB)
  Receive Date: 20251016
  Receipt Date: 20251016
  Transmission Date: 20260118
  Serious: Yes (Death)
  Sender: TEVA
  Company Number: GB-TEVA-VS-3383146

PATIENT
  Age: 58 Year
  Sex: Male

DRUGS (1)
  1. OCTREOTIDE [Suspect]
     Active Substance: OCTREOTIDE
     Indication: Product used for unknown indication
     Dosage: OLATUTON
     Route: 065

REACTIONS (1)
  - Death [Fatal]
